FAERS Safety Report 23964532 (Version 2)
Quarter: 2024Q2

REPORT INFORMATION
  Report Type: Report from Study
  Country: US (occurrence: US)
  Receive Date: 20240612
  Receipt Date: 20240613
  Transmission Date: 20240716
  Serious: Yes (Hospitalization)
  Sender: FDA-Public Use
  Company Number: US-ABBVIE-5795033

PATIENT
  Age: 53 Year
  Sex: Female

DRUGS (2)
  1. SKYRIZI [Suspect]
     Active Substance: RISANKIZUMAB-RZAA
     Indication: Psoriasis
     Dosage: FIRST DOSE? FORM STRENGTH: 150 MILLIGRAM
     Route: 058
     Dates: start: 20240325, end: 20240325
  2. SKYRIZI [Suspect]
     Active Substance: RISANKIZUMAB-RZAA
     Dosage: SECOND DOSE? FORM STRENGTH: 150 MILLIGRAM ?FIRST ADMIN DATE- 2024
     Route: 058

REACTIONS (4)
  - Urinary tract infection [Recovering/Resolving]
  - Dizziness [Unknown]
  - Balance disorder [Unknown]
  - Fall [Unknown]

NARRATIVE: CASE EVENT DATE: 20240605
